FAERS Safety Report 6871511-4 (Version None)
Quarter: 2010Q3

REPORT INFORMATION
  Report Type: 
  Country: None (occurrence: None)
  Receive Date: 20100723
  Receipt Date: 20100712
  Transmission Date: 20110219
  Serious: Yes (Hospitalization)
  Sender: FDA-Public Use
  Company Number: JP-ELI_LILLY_AND_COMPANY-JP201006005600

PATIENT
  Age: 75 Year
  Sex: Female
  Weight: 40.2 kg

DRUGS (10)
  1. PEMETREXED [Suspect]
     Indication: LUNG ADENOCARCINOMA STAGE IV
     Dosage: 655 MG, UNK
     Route: 042
     Dates: start: 20100531, end: 20100531
  2. IRESSA [Concomitant]
     Indication: LUNG ADENOCARCINOMA STAGE IV
     Dosage: UNK, UNK
     Route: 048
     Dates: start: 20100531, end: 20100618
  3. PARAPLATIN [Concomitant]
     Indication: LUNG ADENOCARCINOMA STAGE IV
     Dosage: 390 MG, UNK
     Route: 042
     Dates: start: 20100531, end: 20100531
  4. PANVITAN [Concomitant]
     Dosage: 1 G, DAILY (1/D), 0.5 MG AS FOLIC ACID
     Route: 048
     Dates: start: 20100525, end: 20100618
  5. METHYCOBAL [Concomitant]
     Dosage: 1 MG, UNK
     Route: 030
     Dates: start: 20100525, end: 20100525
  6. DECADRON /NET/ [Concomitant]
     Route: 042
     Dates: start: 20100531, end: 20100531
  7. KYTRIL [Concomitant]
     Route: 042
     Dates: start: 20100531, end: 20100531
  8. TOWARAT [Concomitant]
     Indication: HYPERTENSION
     Dosage: UNK, UNK
     Route: 048
  9. CRESTOR [Concomitant]
     Indication: HYPERLIPIDAEMIA
     Dosage: UNK, UNK
     Route: 048
  10. PURSENNID /00571902/ [Concomitant]
     Indication: CONSTIPATION
     Dosage: UNK, UNK
     Route: 048

REACTIONS (1)
  - CEREBRAL INFARCTION [None]
